FAERS Safety Report 18241160 (Version 1)
Quarter: 2020Q3

REPORT INFORMATION
  Report Type: Spontaneous
  Country: US (occurrence: US)
  Receive Date: 20200906
  Receipt Date: 20200906
  Transmission Date: 20201103
  Serious: No
  Sender: FDA-Public Use
  Company Number: None

PATIENT
  Age: 57 Year
  Sex: Female
  Weight: 47.25 kg

DRUGS (4)
  1. VITAMIN C [Concomitant]
     Active Substance: ASCORBIC ACID
  2. MONTELUKAST [Suspect]
     Active Substance: MONTELUKAST SODIUM
     Indication: DEVICE FAILURE
     Dates: start: 20200229, end: 20200820
  3. CEPHALEXIN. [Concomitant]
     Active Substance: CEPHALEXIN
  4. VITAMIN B [Concomitant]
     Active Substance: VITAMIN B

REACTIONS (14)
  - Amnesia [None]
  - Depression [None]
  - Feeling abnormal [None]
  - Anger [None]
  - Fear [None]
  - Paranoia [None]
  - Somnambulism [None]
  - Suicidal ideation [None]
  - Surgical procedure repeated [None]
  - Costochondritis [None]
  - Pain [None]
  - Burning sensation [None]
  - Urticaria [None]
  - Capsular contracture associated with breast implant [None]

NARRATIVE: CASE EVENT DATE: 20200817
